FAERS Safety Report 8396462-8 (Version None)
Quarter: 2012Q2

REPORT INFORMATION
  Report Type: 
  Country: None (occurrence: None)
  Receive Date: 20120530
  Receipt Date: 20120522
  Transmission Date: 20120825
  Serious: Yes (Hospitalization)
  Sender: FDA-Public Use
  Company Number: US-ALEXION-A201200823

PATIENT
  Sex: Male

DRUGS (4)
  1. HYDRALAZINE HCL [Suspect]
     Indication: HYPERTENSION
     Dosage: UNK
  2. AMLODIPINE BESYLATE [Suspect]
     Indication: HYPERTENSION
     Dosage: UNK
  3. SOLIRIS [Suspect]
     Indication: HAEMOLYTIC URAEMIC SYNDROME
     Dosage: UNK
     Route: 042
  4. MINOXIDIL [Suspect]
     Indication: HYPERTENSION
     Dosage: UNK

REACTIONS (3)
  - SCROTAL OEDEMA [None]
  - OEDEMA PERIPHERAL [None]
  - PENILE OEDEMA [None]
